FAERS Safety Report 4813172-1 (Version None)
Quarter: 2005Q4

REPORT INFORMATION
  Report Type: 
  Country: None (occurrence: None)
  Receive Date: 20051028
  Receipt Date: 20050622
  Transmission Date: 20060501
  Serious: No
  Sender: FDA-Public Use
  Company Number: US-GLAXOSMITHKLINE-A0563814A

PATIENT
  Age: 35 Year
  Sex: Female

DRUGS (7)
  1. ADVAIR DISKUS 100/50 [Suspect]
     Indication: ASTHMA
     Dosage: 2PUFF PER DAY
     Route: 055
     Dates: start: 20050618
  2. WELLBUTRIN [Concomitant]
  3. NASACORT [Concomitant]
  4. SINGULAIR [Concomitant]
  5. ZYRTEC [Concomitant]
  6. ALBUTEROL [Concomitant]
  7. LITHIUM [Concomitant]

REACTIONS (8)
  - AGITATION [None]
  - ANGER [None]
  - FATIGUE [None]
  - INSOMNIA [None]
  - NERVOUSNESS [None]
  - PALPITATIONS [None]
  - SOMNOLENCE [None]
  - TREMOR [None]
